FAERS Safety Report 17790778 (Version 1)
Quarter: 2020Q2

REPORT INFORMATION
  Report Type: Spontaneous
  Country: US (occurrence: US)
  Receive Date: 20200514
  Receipt Date: 20200514
  Transmission Date: 20200714
  Serious: Yes (Other)
  Sender: FDA-Public Use
  Company Number: None

PATIENT
  Age: 65 Year
  Sex: Female
  Weight: 90 kg

DRUGS (24)
  1. HYDROCODONE/ACETAMINOPHEN (GEN. NORCO) [Concomitant]
  2. CALCIUM W/MAG + ZINC/GARLIC + GINGER [Concomitant]
  3. HUMIRA [Suspect]
     Active Substance: ADALIMUMAB
     Indication: RHEUMATOID ARTHRITIS
     Dosage: ?          QUANTITY:1 INJECTION(S);OTHER FREQUENCY:EVERY 2 WEEKS;?
     Route: 058
  4. IBUPROFEN. [Suspect]
     Active Substance: IBUPROFEN
  5. PROAIR HFA [Concomitant]
     Active Substance: ALBUTEROL SULFATE
  6. MULIT SENIOR VITAMIN [Concomitant]
  7. MOTRIN [Suspect]
     Active Substance: IBUPROFEN
     Indication: RHEUMATOID ARTHRITIS
     Route: 048
  8. RESTASIS [Concomitant]
     Active Substance: CYCLOSPORINE
  9. WIXELA INHUB [Concomitant]
     Active Substance: FLUTICASONE PROPIONATE\SALMETEROL XINAFOATE
  10. METRONIDAZOLE TOPICAL CREAM [Concomitant]
     Active Substance: METRONIDAZOLE
  11. TRAZODONE [Concomitant]
     Active Substance: TRAZODONE HYDROCHLORIDE
  12. TUDORZA PRESSAIR [Concomitant]
     Active Substance: ACLIDINIUM BROMIDE
  13. CPAP [Concomitant]
     Active Substance: DEVICE
  14. FUROSEMIDE. [Concomitant]
     Active Substance: FUROSEMIDE
  15. GENERIC CYMBALTA [Concomitant]
     Active Substance: DULOXETINE HYDROCHLORIDE
  16. ROPINIROLE. [Concomitant]
     Active Substance: ROPINIROLE
  17. METHOCARBAMOL. [Concomitant]
     Active Substance: METHOCARBAMOL
  18. IRON [Concomitant]
     Active Substance: IRON
  19. SYNTHROID [Concomitant]
     Active Substance: LEVOTHYROXINE SODIUM
  20. ESTRACE [Concomitant]
     Active Substance: ESTRADIOL
  21. TUMERIC [Concomitant]
     Active Substance: HERBALS\TURMERIC
  22. CLOPIDOGREL [Concomitant]
     Active Substance: CLOPIDOGREL BISULFATE
  23. ATENOLOL. [Concomitant]
     Active Substance: ATENOLOL
  24. TIZANADINE [Concomitant]
     Active Substance: TIZANIDINE

REACTIONS (7)
  - Swelling [None]
  - Tenderness [None]
  - Pain [None]
  - Fluid retention [None]
  - Skin warm [None]
  - Erythema [None]
  - Abdominal distension [None]

NARRATIVE: CASE EVENT DATE: 20190622
